FAERS Safety Report 10434447 (Version 1)
Quarter: 2014Q3

REPORT INFORMATION
  Report Type: Spontaneous
  Country: US (occurrence: US)
  Receive Date: 20140905
  Receipt Date: 20140905
  Transmission Date: 20150326
  Serious: Yes (Other)
  Sender: FDA-Public Use
  Company Number: US-PFIZER INC-2014246108

PATIENT
  Age: 50 Year
  Sex: Female

DRUGS (11)
  1. GABAPENTIN. [Concomitant]
     Active Substance: GABAPENTIN
     Dosage: UNK
  2. REQUIP XL [Suspect]
     Active Substance: ROPINIROLE HYDROCHLORIDE
     Dosage: 4 MG, 2X/DAY
     Route: 048
     Dates: start: 20140811
  3. FLUOXETINE [Concomitant]
     Active Substance: FLUOXETINE\FLUOXETINE HYDROCHLORIDE
     Dosage: UNK
  4. PROVERA [Suspect]
     Active Substance: MEDROXYPROGESTERONE ACETATE
     Dosage: UNK
  5. REQUIP [Suspect]
     Active Substance: ROPINIROLE HYDROCHLORIDE
     Indication: RESTLESS LEGS SYNDROME
     Dosage: UNK
  6. REQUIP XL [Suspect]
     Active Substance: ROPINIROLE HYDROCHLORIDE
     Indication: RESTLESS LEGS SYNDROME
     Dosage: 6 MG, DAILY (4 MG IN THE MORNING AND 2 MG IN THE EVENING)
  7. BACLOFEN. [Concomitant]
     Active Substance: BACLOFEN
     Dosage: UNK
  8. VESICARE [Concomitant]
     Active Substance: SOLIFENACIN SUCCINATE
     Dosage: UNK
  9. AMPYRA [Concomitant]
     Active Substance: DALFAMPRIDINE
     Dosage: UNK
  10. XARELTO [Concomitant]
     Active Substance: RIVAROXABAN
     Dosage: UNK
  11. TECFIDERA [Concomitant]
     Active Substance: DIMETHYL FUMARATE
     Dosage: UNK

REACTIONS (7)
  - Haemorrhage [Unknown]
  - Hypotension [Unknown]
  - Drug ineffective [Unknown]
  - Psychotic disorder [Unknown]
  - Lethargy [Unknown]
  - Dizziness [Unknown]
  - Dysuria [Unknown]

NARRATIVE: CASE EVENT DATE: 2014
